FAERS Safety Report 5270207-2 (Version None)
Quarter: 2007Q1

REPORT INFORMATION
  Report Type: 
  Country: None (occurrence: None)
  Receive Date: 20061214
  Receipt Date: 20060915
  Transmission Date: 20070707
  Serious: No
  Sender: FDA-Public Use
  Company Number: IND-AE-06-SAN-038

PATIENT
  Age: 77 Year
  Sex: Female
  Weight: 54.4316 kg

DRUGS (2)
  1. SANCTURA [Suspect]
     Indication: HYPERTONIC BLADDER
     Dosage: 20 MG - BID - ORAL
     Route: 048
     Dates: start: 20060901, end: 20060910
  2. FOSAMAX [Concomitant]

REACTIONS (2)
  - DIPLOPIA [None]
  - VISION BLURRED [None]
